FAERS Safety Report 10642546 (Version 1)
Quarter: 2014Q4

REPORT INFORMATION
  Report Type: Spontaneous
  Country: US (occurrence: None)
  Receive Date: 20141209
  Receipt Date: 20141209
  Transmission Date: 20150529
  Serious: Yes (Death)
  Sender: FDA-Public Use
  Company Number: None

PATIENT
  Age: 64 Year
  Sex: Male
  Weight: 93.44 kg

DRUGS (1)
  1. XOFIGO [Suspect]
     Active Substance: RADIUM RA-223 DICHLORIDE

REACTIONS (5)
  - Blood count abnormal [None]
  - Drug ineffective [None]
  - Platelet count decreased [None]
  - Unevaluable event [None]
  - Acute kidney injury [None]

NARRATIVE: CASE EVENT DATE: 20140622
